FAERS Safety Report 25935163 (Version 2)
Quarter: 2025Q4

REPORT INFORMATION
  Report Type: Spontaneous
  Country: US (occurrence: US)
  Receive Date: 20251017
  Receipt Date: 20251103
  Transmission Date: 20260117
  Serious: No
  Sender: BLUEPRINT MEDICINES
  Company Number: US-Blueprint Medicines Corporation-2025-AER-02263

PATIENT
  Age: 64 Year
  Sex: Female

DRUGS (1)
  1. AYVAKIT [Suspect]
     Active Substance: AVAPRITINIB
     Indication: Systemic mastocytosis
     Route: 065
     Dates: start: 20250909

REACTIONS (9)
  - Ocular icterus [Unknown]
  - Blood thyroid stimulating hormone abnormal [Unknown]
  - Dysphonia [Unknown]
  - Hair colour changes [Unknown]
  - Eye swelling [Unknown]
  - Eye irritation [Unknown]
  - Lacrimation increased [Unknown]
  - Peripheral swelling [Unknown]
  - Swelling face [Unknown]
